FAERS Safety Report 20258338 (Version 1)
Quarter: 2021Q4

REPORT INFORMATION
  Report Type: Spontaneous
  Country: US (occurrence: US)
  Receive Date: 20211230
  Receipt Date: 20211230
  Transmission Date: 20220303
  Serious: Yes (Life-Threatening, Hospitalization)
  Sender: FDA-Public Use
  Company Number: US-SABAL THERAPEUTICS LLC-2021-ATH-000011

PATIENT
  Age: 53 Year
  Sex: Female

DRUGS (9)
  1. OZOBAX [Suspect]
     Active Substance: BACLOFEN
     Indication: Product used for unknown indication
     Dosage: 40 MG, TID
     Route: 048
  2. OZOBAX [Suspect]
     Active Substance: BACLOFEN
     Dosage: 20 MG, QID
     Route: 048
  3. OZOBAX [Suspect]
     Active Substance: BACLOFEN
     Dosage: 20 MG, TID
     Route: 048
  4. OZOBAX [Suspect]
     Active Substance: BACLOFEN
     Dosage: 40 MG, TID
     Route: 048
  5. OZOBAX [Suspect]
     Active Substance: BACLOFEN
     Dosage: 20 MG, TID
     Route: 048
  6. OZOBAX [Suspect]
     Active Substance: BACLOFEN
     Dosage: 40 MG, TID
     Route: 048
  7. AMITRIPTYLINE [Concomitant]
     Active Substance: AMITRIPTYLINE
     Indication: Product used for unknown indication
     Dosage: 40 MG, QD
  8. PREGABALIN [Concomitant]
     Active Substance: PREGABALIN
     Indication: Product used for unknown indication
     Dosage: 300 MG, TID
  9. BACLOFEN [Concomitant]
     Active Substance: BACLOFEN
     Indication: Product used for unknown indication
     Dosage: 40 MG, QID

REACTIONS (2)
  - Hyperthermia [Recovered/Resolved]
  - Withdrawal syndrome [Recovered/Resolved]
